FAERS Safety Report 25341941 (Version 1)
Quarter: 2025Q2

REPORT INFORMATION
  Report Type: Spontaneous
  Country: US (occurrence: None)
  Receive Date: 20250520
  Receipt Date: 20250520
  Transmission Date: 20250717
  Serious: Yes (Other)
  Sender: FDA-CTU
  Company Number: None

PATIENT
  Age: 18 Year
  Sex: Male
  Weight: 69.75 kg

DRUGS (1)
  1. OMEPRAZOLE [Suspect]
     Active Substance: OMEPRAZOLE
     Indication: Gastrooesophageal reflux disease
     Dosage: OTHER QUANTITY : 1 CAPSULE(S);?FREQUENCY : TWICE A DAY;?
     Route: 048
     Dates: start: 20250501, end: 20250519

REACTIONS (7)
  - Rash [None]
  - Dyspnoea [None]
  - Lip swelling [None]
  - Peripheral swelling [None]
  - Joint swelling [None]
  - Joint swelling [None]
  - Pain [None]

NARRATIVE: CASE EVENT DATE: 20250518
